FAERS Safety Report 23223393 (Version 1)
Quarter: 2023Q4

REPORT INFORMATION
  Report Type: Spontaneous
  Country: CA (occurrence: CA)
  Receive Date: 20231123
  Receipt Date: 20231123
  Transmission Date: 20240110
  Serious: Yes (Other)
  Sender: FDA-Public Use
  Company Number: CA-CELLTRION INC.-2023CA004100

PATIENT

DRUGS (13)
  1. INFLECTRA [Suspect]
     Active Substance: INFLIXIMAB-DYYB
     Indication: Ankylosing spondylitis
     Dosage: 1300 MG, INDUCTION W0,2,6 AND MAINTENANCE Q8 WEEKS
     Route: 042
     Dates: start: 20230222
  2. INFLECTRA [Suspect]
     Active Substance: INFLIXIMAB-DYYB
     Dosage: 1300 MG WEEKS 0,2,6 THEN Q 8 WEEKS
     Route: 042
     Dates: start: 20230306
  3. INFLECTRA [Suspect]
     Active Substance: INFLIXIMAB-DYYB
     Dosage: 1300 MG ON WEEK 6
     Route: 042
     Dates: start: 20230405
  4. INFLECTRA [Suspect]
     Active Substance: INFLIXIMAB-DYYB
     Dosage: 1300 MG, EVERY 8 WEEKS
     Route: 042
     Dates: start: 20230602
  5. INFLECTRA [Suspect]
     Active Substance: INFLIXIMAB-DYYB
     Dosage: 1300 MG, EVERY 8 WEEKS
     Route: 042
     Dates: start: 20230726
  6. INFLECTRA [Suspect]
     Active Substance: INFLIXIMAB-DYYB
     Dosage: 1300 MG, EVERY 8 WEEKS
     Route: 042
     Dates: start: 20230922
  7. INFLECTRA [Suspect]
     Active Substance: INFLIXIMAB-DYYB
     Dosage: 1300 MG, EVERY 8 WEEKS
     Route: 042
     Dates: start: 20231115
  8. ALLOPURINOL [Concomitant]
     Active Substance: ALLOPURINOL
     Dosage: 1 DF
  9. METHOTREXATE [Concomitant]
     Active Substance: METHOTREXATE
     Dosage: UNK, SHOULD BEGIN TREATMENT
  10. METFORMIN [Concomitant]
     Active Substance: METFORMIN HYDROCHLORIDE
     Dosage: 1 DF
  11. INSULIN NOS [Concomitant]
     Active Substance: INSULIN NOS
     Dosage: 1 DF
  12. ROSUVASTATIN [Concomitant]
     Active Substance: ROSUVASTATIN
     Dosage: 1 DF
  13. SYNTHROID [Concomitant]
     Active Substance: LEVOTHYROXINE SODIUM
     Dosage: 1 DF

REACTIONS (5)
  - Colitis [Recovered/Resolved]
  - Weight increased [Not Recovered/Not Resolved]
  - Off label use [Unknown]
  - Off label use [Unknown]
  - Intentional product use issue [Unknown]

NARRATIVE: CASE EVENT DATE: 20230101
